FAERS Safety Report 16476466 (Version 1)
Quarter: 2019Q2

REPORT INFORMATION
  Report Type: Spontaneous
  Country: GB (occurrence: GB)
  Receive Date: 20190626
  Receipt Date: 20190626
  Transmission Date: 20190711
  Serious: Yes (Disabling)
  Sender: FDA-Public Use
  Company Number: PHHY2019GB145364

PATIENT
  Age: 72 Year
  Sex: Male

DRUGS (2)
  1. AMITRIPTYLINE [Interacting]
     Active Substance: AMITRIPTYLINE
     Indication: PRODUCT USED FOR UNKNOWN INDICATION
     Dosage: UNK
     Route: 065
  2. ENTRESTO [Suspect]
     Active Substance: SACUBITRIL\VALSARTAN
     Indication: LEFT VENTRICULAR DYSFUNCTION
     Dosage: 50 MG, BID
     Route: 048
     Dates: start: 20190526

REACTIONS (3)
  - Paraesthesia [Recovered/Resolved]
  - Grip strength decreased [Recovered/Resolved]
  - Drug interaction [Unknown]

NARRATIVE: CASE EVENT DATE: 20190526
